FAERS Safety Report 5163317-1 (Version None)
Quarter: 2006Q4

REPORT INFORMATION
  Report Type: 
  Country: None (occurrence: None)
  Receive Date: 20061121
  Receipt Date: 20061110
  Transmission Date: 20070319
  Serious: Yes (Other)
  Sender: FDA-Public Use
  Company Number: 2006140421

PATIENT
  Age: 46 Year
  Sex: Female
  Weight: 58.9676 kg

DRUGS (11)
  1. BENADRYL [Suspect]
     Dosage: 1 SOFTGEL PRN 2 TIMES EVERY Q4H, ORAL
     Route: 048
     Dates: start: 20030101, end: 20060101
  2. QUERCETIN (QUERCETIN) [Concomitant]
  3. XANTHOPHYLL (XANTHOPHYLL) [Concomitant]
  4. SOY LECITHIN/WHEY PROTEINS (LECITHINUM SOYA, WHEY PROTEINS) [Concomitant]
  5. ASCORBIC ACID [Concomitant]
  6. CHLOROPHYLLIN SODIUM COPPER COMPLEX (CHLOROPHYLLIN SODIUM COPPER COMPL [Concomitant]
  7. AMINO ACIDS NOS (AMINO ACIDS NOS) [Concomitant]
  8. CALCIUM MAGNESIUM ZINC (CALCIUM, MAGNESIUM, ZINC) [Concomitant]
  9. BROMELAINS (BROMELAINS) [Concomitant]
  10. CYANOCOBALAMIN [Concomitant]
  11. KELP (KELP) [Concomitant]

REACTIONS (2)
  - MENORRHAGIA [None]
  - VITREOUS FLOATERS [None]
